FAERS Safety Report 5867004-3 (Version None)
Quarter: 2008Q3

REPORT INFORMATION
  Report Type: 
  Country: None (occurrence: None)
  Receive Date: 20080902
  Receipt Date: 20080826
  Transmission Date: 20090109
  Serious: Yes (Hospitalization)
  Sender: FDA-Public Use
  Company Number: A0741206A

PATIENT
  Age: 57 Year
  Sex: Female
  Weight: 72 kg

DRUGS (3)
  1. TYKERB [Suspect]
     Dosage: 1250MG PER DAY
     Dates: start: 20080527, end: 20080722
  2. CAPECITABINE [Concomitant]
     Dosage: 3500MG PER DAY
     Dates: start: 20080525, end: 20080722
  3. PAMIDRONATE DISODIUM [Concomitant]
     Dosage: 90MG PER DAY
     Dates: start: 20060101, end: 20080710

REACTIONS (8)
  - BLOOD BILIRUBIN INCREASED [None]
  - BONE PAIN [None]
  - ILL-DEFINED DISORDER [None]
  - NAUSEA [None]
  - SPINAL FRACTURE [None]
  - THROMBOCYTOPENIA [None]
  - TUBERCULOSIS [None]
  - VOMITING [None]
